FAERS Safety Report 8601619 (Version 2)
Quarter: 2012Q4

REPORT INFORMATION
  Report Type: 
  Country: FR (occurrence: FR)
  Receive Date: 20120606
  Receipt Date: 20120912
  Transmission Date: 20130627
  Serious: Yes (Other)
  Sender: FDA-Public Use
  Company Number: FR-PFIZER INC-2012129553

PATIENT
  Age: 45 Year
  Sex: Female

DRUGS (3)
  1. GENOTONORM [Suspect]
     Indication: HYPOPITUITARISM
     Dosage: 0.5 mg, 1x/day
     Dates: start: 200904, end: 201203
  2. HYDROCORTISONE [Concomitant]
     Dosage: 20 mg, 1x/day
     Route: 048
  3. TRILEPTAL [Concomitant]
     Indication: EPILEPSY
     Route: 048

REACTIONS (3)
  - Neoplasm progression [Not Recovered/Not Resolved]
  - Convulsion [Recovering/Resolving]
  - Insulin-like growth factor increased [Unknown]
